FAERS Safety Report 7529941-3 (Version None)
Quarter: 2011Q2

REPORT INFORMATION
  Report Type: 
  Country: None (occurrence: None)
  Receive Date: 20110607
  Receipt Date: 20110523
  Transmission Date: 20111010
  Serious: Yes (Hospitalization)
  Sender: FDA-Public Use
  Company Number: US-WATSON-2011-07115

PATIENT
  Sex: Female
  Weight: 71 kg

DRUGS (2)
  1. RAPAFLO [Suspect]
     Indication: NEPHROLITHIASIS
     Dosage: 4 MG, DAILY
     Route: 048
     Dates: start: 20110501, end: 20110512
  2. AMITRIPTYLINE HCL [Concomitant]
     Indication: FIBROMYALGIA
     Dosage: UNK
     Route: 048

REACTIONS (11)
  - DEHYDRATION [None]
  - ABDOMINAL DISTENSION [None]
  - PRODUCTIVE COUGH [None]
  - HEADACHE [None]
  - RHINORRHOEA [None]
  - HYPOTENSION [None]
  - TONGUE BLISTERING [None]
  - NAUSEA [None]
  - INSOMNIA [None]
  - BACK PAIN [None]
  - DYSGEUSIA [None]
